FAERS Safety Report 10045079 (Version 1)
Quarter: 2014Q1

REPORT INFORMATION
  Report Type: Spontaneous
  Country: US (occurrence: US)
  Receive Date: 20140328
  Receipt Date: 20140328
  Transmission Date: 20141002
  Serious: Yes (Other)
  Sender: FDA-Public Use
  Company Number: PHEH2014US005721

PATIENT
  Sex: Female

DRUGS (2)
  1. GILENYA [Suspect]
     Dosage: UNK
     Route: 048
     Dates: end: 20131022
  2. GILENYA [Suspect]
     Dosage: UNK
     Route: 048
     Dates: start: 20140318

REACTIONS (3)
  - Coeliac disease [Unknown]
  - Abdominal pain [Unknown]
  - Hepatic enzyme increased [Unknown]
